FAERS Safety Report 10422922 (Version 1)
Quarter: 2014Q3

REPORT INFORMATION
  Report Type: Spontaneous
  Country: US (occurrence: None)
  Receive Date: 20140722
  Receipt Date: 20140722
  Transmission Date: 20150326
  Serious: Yes (Other)
  Sender: FDA-Public Use
  Company Number: 163-10004-14054713

PATIENT
  Age: 67 Year
  Sex: Female
  Weight: 90.72 kg

DRUGS (8)
  1. LACTULOSE. [Concomitant]
     Active Substance: LACTULOSE
  2. EFFEXOR (VENLAFAXINE HYDROCHLORIDE) [Concomitant]
  3. OLYSIO [Concomitant]
     Active Substance: SIMEPREVIR
  4. OTEZLA [Suspect]
     Active Substance: APREMILAST
     Indication: PSORIATIC ARTHROPATHY
     Route: 048
     Dates: start: 20140419, end: 20140522
  5. SOVALDI (SOFOSBUVIR) [Concomitant]
  6. SPIRONOLACTONE. [Concomitant]
     Active Substance: SPIRONOLACTONE
  7. OMEPRAZOLE. [Concomitant]
     Active Substance: OMEPRAZOLE
  8. NADOLOL. [Concomitant]
     Active Substance: NADOLOL

REACTIONS (1)
  - Psoriatic arthropathy [None]
